FAERS Safety Report 10712031 (Version 1)
Quarter: 2015Q1

REPORT INFORMATION
  Report Type: Spontaneous
  Country: US (occurrence: US)
  Receive Date: 20150114
  Receipt Date: 20150114
  Transmission Date: 20150721
  Serious: No
  Sender: FDA-Public Use
  Company Number: US-ALLERGAN-1409961US

PATIENT
  Age: 77 Year
  Sex: Male

DRUGS (1)
  1. ACZONE [Suspect]
     Active Substance: DAPSONE
     Indication: SKIN IRRITATION
     Dosage: UNK
     Dates: start: 201312, end: 201404

REACTIONS (2)
  - Application site erythema [Recovering/Resolving]
  - Off label use [Unknown]
